FAERS Safety Report 20133402 (Version 1)
Quarter: 2021Q4

REPORT INFORMATION
  Report Type: Spontaneous
  Country: SE (occurrence: SE)
  Receive Date: 20211201
  Receipt Date: 20211201
  Transmission Date: 20220303
  Serious: Yes (Disabling)
  Sender: FDA-Public Use
  Company Number: None

PATIENT
  Age: 33 Year
  Sex: Female

DRUGS (1)
  1. NEXPLANON [Suspect]
     Active Substance: ETONOGESTREL
     Indication: Contraception
     Dosage: 68 MG
     Route: 059
     Dates: start: 20211025, end: 20211112

REACTIONS (3)
  - Pain [Not Recovered/Not Resolved]
  - Erythema [Not Recovered/Not Resolved]
  - Implant site pruritus [Not Recovered/Not Resolved]

NARRATIVE: CASE EVENT DATE: 20210101
